FAERS Safety Report 4589212-4 (Version None)
Quarter: 2005Q1

REPORT INFORMATION
  Report Type: 
  Country: None (occurrence: None)
  Receive Date: 20050214
  Receipt Date: 20050214
  Transmission Date: 20050727
  Serious: Yes (Other)
  Sender: FDA-Public Use
  Company Number: None

PATIENT
  Sex: Female
  Weight: 99.7913 kg

DRUGS (1)
  1. LORTAB [Suspect]
     Dosage: ONE PO Q 8 H PRN PAIN
     Route: 048
     Dates: start: 20041115

REACTIONS (3)
  - DRUG INEFFECTIVE [None]
  - PAIN [None]
  - PHARMACEUTICAL PRODUCT COMPLAINT [None]
